FAERS Safety Report 7243882-0 (Version None)
Quarter: 2011Q1

REPORT INFORMATION
  Report Type: 
  Country: None (occurrence: None)
  Receive Date: 20110125
  Receipt Date: 20110120
  Transmission Date: 20110831
  Serious: Yes (Hospitalization)
  Sender: FDA-Public Use
  Company Number: A0907723A

PATIENT
  Age: 53 Year
  Sex: Female

DRUGS (2)
  1. UNKNOWN [Concomitant]
  2. RYTHMOL [Suspect]
     Dosage: 325MG TWICE PER DAY
     Route: 048

REACTIONS (1)
  - SPEECH DISORDER [None]
